FAERS Safety Report 6013781-0 (Version None)
Quarter: 2008Q4

REPORT INFORMATION
  Report Type: 
  Country: None (occurrence: None)
  Receive Date: 20081216
  Receipt Date: 20071031
  Transmission Date: 20090506
  Serious: Yes (Death)
  Sender: FDA-Public Use
  Company Number: US-WYE-H00978507

PATIENT
  Age: 29 Year
  Sex: Female
  Weight: 72.64 kg

DRUGS (4)
  1. EFFEXOR XR [Suspect]
     Indication: DEPRESSION
     Dosage: OVERDOSE AMOUNT UNKNOWN, ORAL
     Route: 048
     Dates: start: 20070825, end: 20070825
  2. ALCOHOL (ETHANOL, ) [Suspect]
     Dosage: OVERDOSE AMOUNT UNKNOWN, ORAL
     Route: 048
     Dates: start: 20070825, end: 20070825
  3. DOXYLAMINE SUCCINATE [Suspect]
     Indication: INSOMNIA
     Dosage: OVERDOSE AMOUNT UNKNOWN, ORAL
     Route: 048
     Dates: start: 20070825, end: 20070825
  4. ACETAMINOPHEN [Suspect]
     Indication: PAIN
     Dosage: OVERDOSE AMOUNT UNKNOWN, ORAL
     Route: 048
     Dates: start: 20070825, end: 20070825

REACTIONS (4)
  - COMPLETED SUICIDE [None]
  - CONVULSION [None]
  - INTENTIONAL OVERDOSE [None]
  - SOMNOLENCE [None]
